FAERS Safety Report 8843175 (Version 1)
Quarter: 2012Q4

REPORT INFORMATION
  Report Type: 
  Country: US (occurrence: US)
  Receive Date: 20121016
  Receipt Date: 20121016
  Transmission Date: 20130627
  Serious: No
  Sender: FDA-Public Use
  Company Number: US-ASTRAZENECA-2012SE75695

PATIENT
  Age: 69 Year
  Sex: Female
  Weight: 125 kg

DRUGS (4)
  1. NEXIUM [Suspect]
     Indication: GASTROOESOPHAGEAL REFLUX DISEASE
     Route: 048
     Dates: start: 2010, end: 2010
  2. NEXIUM [Suspect]
     Indication: PEPTIC ULCER
     Route: 048
     Dates: start: 2010, end: 2010
  3. NEXIUM [Suspect]
     Indication: GASTROOESOPHAGEAL REFLUX DISEASE
     Route: 048
     Dates: start: 201209, end: 20120929
  4. NEXIUM [Suspect]
     Indication: PEPTIC ULCER
     Route: 048
     Dates: start: 201209, end: 20120929

REACTIONS (14)
  - Pain [Unknown]
  - Peptic ulcer [Unknown]
  - Irritable bowel syndrome [Unknown]
  - Abdominal distension [Unknown]
  - Abdominal pain [Unknown]
  - Malaise [Unknown]
  - Constipation [Unknown]
  - Depressed mood [Unknown]
  - Diarrhoea [Unknown]
  - Flatulence [Unknown]
  - Abdominal discomfort [Unknown]
  - Vomiting [Unknown]
  - Intentional drug misuse [Unknown]
  - Off label use [Unknown]
